FAERS Safety Report 6639818-3 (Version None)
Quarter: 2010Q1

REPORT INFORMATION
  Report Type: 
  Country: None (occurrence: None)
  Receive Date: 20100318
  Receipt Date: 20100309
  Transmission Date: 20100710
  Serious: Yes (Hospitalization)
  Sender: FDA-Public Use
  Company Number: US-ASTRAZENECA-2010SE10123

PATIENT
  Age: 71 Year
  Sex: Female

DRUGS (2)
  1. NEXIUM [Suspect]
     Indication: GASTROOESOPHAGEAL REFLUX DISEASE
     Dosage: EVERY OTHER DAY
     Route: 048
  2. PRILOSEC OTC [Suspect]
     Route: 048

REACTIONS (4)
  - COLECTOMY [None]
  - DRUG DOSE OMISSION [None]
  - OESOPHAGEAL PAIN [None]
  - OESOPHAGITIS [None]
